FAERS Safety Report 15612216 (Version 1)
Quarter: 2018Q4

REPORT INFORMATION
  Report Type: Spontaneous
  Country: KR (occurrence: KR)
  Receive Date: 20181113
  Receipt Date: 20181113
  Transmission Date: 20190205
  Serious: Yes (Other)
  Sender: FDA-Public Use
  Company Number: KR-ASTRAZENECA-2018SF47586

PATIENT
  Age: 50 Year
  Sex: Female

DRUGS (2)
  1. OSIMERTINIB. [Concomitant]
     Active Substance: OSIMERTINIB
     Dates: start: 20160825
  2. GEFITINIB. [Suspect]
     Active Substance: GEFITINIB
     Route: 048
     Dates: start: 201511, end: 201608

REACTIONS (1)
  - Malignant neoplasm progression [Unknown]
